FAERS Safety Report 21458629 (Version 2)
Quarter: 2022Q4

REPORT INFORMATION
  Report Type: Report from Study
  Country: US (occurrence: US)
  Receive Date: 20221014
  Receipt Date: 20221116
  Transmission Date: 20230113
  Serious: Yes (Hospitalization)
  Sender: FDA-Public Use
  Company Number: US-PFIZER INC-202201225406

PATIENT
  Age: 62 Year
  Sex: Male
  Weight: 98.9 kg

DRUGS (57)
  1. VORICONAZOLE [Suspect]
     Active Substance: VORICONAZOLE
     Indication: Antifungal prophylaxis
     Dosage: 200 MG, 2X/DAY
     Route: 048
     Dates: start: 20220502, end: 20220503
  2. ACETAMINOPHEN [Concomitant]
     Active Substance: ACETAMINOPHEN
     Dosage: 650 MG, 4X/DAY
     Route: 048
     Dates: start: 20220501, end: 20220503
  3. ACETAMINOPHEN [Concomitant]
     Active Substance: ACETAMINOPHEN
     Dosage: 650 MG, 4X/DAY, NASOGASTRIC
     Dates: start: 20220430, end: 20220501
  4. ALBUTEROL [Concomitant]
     Active Substance: ALBUTEROL
     Dosage: 2.5 MG, AS NEEDED (AS REQUIRED), NEBULIZER
     Dates: start: 20220430, end: 20220607
  5. BASILIXIMAB [Concomitant]
     Active Substance: BASILIXIMAB
     Dosage: 20 MG, ONCE
     Route: 042
     Dates: start: 20220430, end: 20220430
  6. CILGAVIMAB [Concomitant]
     Active Substance: CILGAVIMAB
     Indication: COVID-19 prophylaxis
     Dosage: 300 MG, ONCE
     Route: 030
     Dates: start: 20220503, end: 20220503
  7. DOCUSATE [Concomitant]
     Active Substance: DOCUSATE
     Indication: Constipation prophylaxis
     Dosage: 100 MG, AS NEEDED
     Route: 048
     Dates: start: 20220501, end: 20220504
  8. DOXYCYCLINE [Concomitant]
     Active Substance: DOXYCYCLINE
     Indication: Infection prophylaxis
     Dosage: 100 MG, 2X/DAY
     Route: 048
     Dates: start: 20220501, end: 20220511
  9. DOXYCYCLINE [Concomitant]
     Active Substance: DOXYCYCLINE
     Dosage: 100 MG, 2X/DAY
     Route: 042
     Dates: start: 20220430, end: 20220501
  10. ENOXAPARIN [Concomitant]
     Active Substance: ENOXAPARIN
     Indication: Thrombosis prophylaxis
     Dosage: 30 MG, 1X/DAY
     Route: 058
     Dates: start: 20220501, end: 20220607
  11. FENTANYL [Concomitant]
     Active Substance: FENTANYL
     Dosage: 25 UG, AS NEEDED
     Route: 042
     Dates: start: 20220430, end: 20220801
  12. FENTANYL [Concomitant]
     Active Substance: FENTANYL
     Dosage: 50 UG, AS NEEDED
     Route: 042
     Dates: start: 20220430, end: 20220801
  13. INSULIN NOS [Concomitant]
     Active Substance: INSULIN NOS
     Indication: Hyperglycaemia
     Dosage: 10 IU, 1X/DAY
     Route: 058
     Dates: start: 20220502, end: 20220511
  14. IPRATROPIUM [Concomitant]
     Active Substance: IPRATROPIUM
     Dosage: 0.5 MG, 4X/DAY, NEBULIZER
     Dates: start: 20220430, end: 20220509
  15. METOCLOPRAMIDE [Concomitant]
     Active Substance: METOCLOPRAMIDE
     Indication: Prophylaxis of nausea and vomiting
     Dosage: 5-10 MG, 4X/DAY
     Route: 042
     Dates: start: 20220502, end: 20220508
  16. GLYCOPYRROLATE [Concomitant]
     Active Substance: GLYCOPYRROLATE
     Dosage: 0.2 MG, AS NEEDED
     Route: 042
     Dates: start: 20220430, end: 20220527
  17. LIDOCAINE [Concomitant]
     Active Substance: LIDOCAINE
     Dosage: 100 MG, AS NEEDED
     Route: 042
     Dates: start: 20220430, end: 20220527
  18. MYCOPHENOLIC ACID [Concomitant]
     Active Substance: MYCOPHENOLIC ACID
     Dosage: 1000 MG, 2X/DAY
     Route: 042
     Dates: start: 20220430, end: 20220504
  19. MIDAZOLAM [Concomitant]
     Active Substance: MIDAZOLAM
     Dosage: 1 MG, AS NEEDED
     Route: 048
     Dates: start: 20220430, end: 20220801
  20. TACROLIMUS [Concomitant]
     Active Substance: TACROLIMUS
     Dosage: 1 MG, 2X/DAY
     Route: 060
     Dates: start: 20220502, end: 20220504
  21. TACROLIMUS [Concomitant]
     Active Substance: TACROLIMUS
     Dosage: 0.5 MG, 2X/DAY
     Route: 060
     Dates: start: 20220501, end: 20220502
  22. METOPROLOL [Concomitant]
     Active Substance: METOPROLOL
     Indication: Pulmonary hypertension
     Dosage: 25 MG, 2X/DAY
     Route: 048
     Dates: start: 20220502, end: 20220505
  23. OXYCODONE [Concomitant]
     Active Substance: OXYCODONE
     Dosage: 5-10 MG, AS NEEDED
     Route: 048
     Dates: start: 20220501, end: 20220507
  24. PANTOPRAZOLE [Concomitant]
     Active Substance: PANTOPRAZOLE
     Indication: Gastrooesophageal reflux disease
     Dosage: 40 MG, 1X/DAY
     Route: 048
     Dates: start: 20220502
  25. PIPERACILLIN SODIUM\TAZOBACTAM SODIUM [Concomitant]
     Active Substance: PIPERACILLIN SODIUM\TAZOBACTAM SODIUM
     Indication: Prophylaxis
     Dosage: 4.5 G, CONTINUOUS INFUSION
     Route: 042
     Dates: start: 20220429, end: 20220505
  26. SERTRALINE [Concomitant]
     Active Substance: SERTRALINE HYDROCHLORIDE
     Indication: Anxiety
     Dosage: 50-10MG, 1X/DAY
     Route: 048
     Dates: start: 20220429
  27. ONDANSETRON [Concomitant]
     Active Substance: ONDANSETRON
     Dosage: 4 MG, AS NEEDED
     Route: 042
     Dates: start: 20220430, end: 20220505
  28. ROCURONIUM [Concomitant]
     Active Substance: ROCURONIUM BROMIDE
     Dosage: 10 MG/ML, CONTINUOUS INFUSION
     Route: 042
     Dates: start: 20220430, end: 20220527
  29. VALGANCICLOVIR [Concomitant]
     Active Substance: VALGANCICLOVIR
     Indication: Cytomegalovirus infection
     Dosage: 450 MG, 2X/DAY
     Route: 048
     Dates: start: 20220430
  30. PREDNISONE [Concomitant]
     Active Substance: PREDNISONE
     Dosage: 10-11MG, 1X/DAY
     Route: 048
     Dates: start: 20220501
  31. TRAZODONE [Concomitant]
     Active Substance: TRAZODONE HYDROCHLORIDE
     Indication: Insomnia
     Dosage: 25100 MG, 1X/DAY
     Route: 048
     Dates: start: 20220502
  32. TIXAGEVIMAB [Concomitant]
     Active Substance: TIXAGEVIMAB
     Indication: COVID-19
     Dosage: 300 MG, ONCE
     Route: 030
     Dates: start: 20220503, end: 20220503
  33. OXYGEN [Concomitant]
     Active Substance: OXYGEN
     Dosage: 1-8L, AS NEEDED, NEBULIZER, SUPPLEMENTAL OXYGEN
     Dates: start: 20220501, end: 20220823
  34. FAMOTIDINE [Concomitant]
     Active Substance: FAMOTIDINE
     Indication: Gastrointestinal disorder prophylaxis
     Dosage: 20 MG, 2X/DAY
     Route: 042
     Dates: start: 20220430, end: 20220501
  35. FAMOTIDINE [Concomitant]
     Active Substance: FAMOTIDINE
     Dosage: 20 MG, 2X/DAY
     Route: 048
     Dates: start: 20220501, end: 20220502
  36. AMINOCAPROIC ACID [Concomitant]
     Active Substance: AMINOCAPROIC ACID
     Dosage: 450 MG/KG/HR, ONCE
     Route: 042
     Dates: start: 20220430, end: 20220430
  37. CALCIUM GLUCONATE [Concomitant]
     Active Substance: CALCIUM GLUCONATE
     Dosage: 1 G, ONCE
     Route: 042
     Dates: start: 20220501, end: 20220501
  38. DEXMEDETOMIDINE [Concomitant]
     Active Substance: DEXMEDETOMIDINE
     Dosage: 0.7MCG/KG/HR, CONTINUOUS INFUSION
     Dates: start: 20220430, end: 20220430
  39. EPINEPHRINE [Concomitant]
     Active Substance: EPINEPHRINE
     Dosage: 8 UG, ONCE
     Route: 042
     Dates: start: 20220430, end: 20220430
  40. INSULIN LISPRO [Concomitant]
     Active Substance: INSULIN LISPRO
     Indication: Hyperglycaemia
     Dosage: 6 IU, AS NEEDED
     Route: 058
     Dates: start: 20220502, end: 20220511
  41. INSULIN NOS [Concomitant]
     Active Substance: INSULIN NOS
     Indication: Hyperglycaemia
     Dosage: 5 IU, AS NEEDED, INSULIN REGULAR
     Route: 058
     Dates: start: 20220430, end: 20220502
  42. HEPARIN [Concomitant]
     Active Substance: HEPARIN SODIUM
     Dosage: 1000 IU, CONTINUOUS INFUSION
     Route: 042
     Dates: start: 20220430, end: 20220430
  43. METHYLPREDNISOLONE [Concomitant]
     Active Substance: METHYLPREDNISOLONE
     Dosage: 200 MG, ONCE
     Route: 042
     Dates: start: 20220430, end: 20220501
  44. METHYLPREDNISOLONE [Concomitant]
     Active Substance: METHYLPREDNISOLONE
     Dosage: 250 MG, ONCE
     Route: 042
     Dates: start: 20220429, end: 20220430
  45. METHYLPREDNISOLONE [Concomitant]
     Active Substance: METHYLPREDNISOLONE
     Dosage: 500 MG, ONCE
     Route: 042
     Dates: start: 20220430, end: 20220430
  46. NITROGLYCERIN [Concomitant]
     Active Substance: NITROGLYCERIN
     Dosage: 20 UG, CONTINUOUS INFUSION
     Route: 042
     Dates: start: 20220430, end: 20220430
  47. CHLORHEXIDINE GLUCONATE [Concomitant]
     Active Substance: CHLORHEXIDINE GLUCONATE
     Dosage: 1 APPLICATION, ONCE, CHLORHEXIDINE GLUCONATE 2% TOWL
     Route: 061
     Dates: start: 20220429, end: 20220429
  48. NOREPINEPHRINE [Concomitant]
     Active Substance: NOREPINEPHRINE
     Dosage: 8-16 MILLIGRAM, CONTINUOUS INFUSION
     Route: 042
     Dates: start: 20220430, end: 20220501
  49. PHENYLEPHRINE [Concomitant]
     Active Substance: PHENYLEPHRINE HYDROCHLORIDE
     Dosage: 80 MG, AS NEEDED
     Route: 042
     Dates: start: 20220430, end: 20220430
  50. PROPOFOL [Concomitant]
     Active Substance: PROPOFOL
     Dosage: 10 MG/ML, CONTINUOUS INFUSION
     Route: 042
     Dates: start: 20220430, end: 20220430
  51. PROPOFOL [Concomitant]
     Active Substance: PROPOFOL
     Dosage: 160 MG, ONCE, CONTINUOUS INFUSION
     Route: 042
     Dates: start: 20220527
  52. PROTAMINE [Concomitant]
     Active Substance: PROTAMINE
     Dosage: 50 MG, ONCE
     Route: 042
     Dates: start: 20220430, end: 20220430
  53. SENNOSIDES A AND B [Concomitant]
     Active Substance: SENNOSIDES A AND B
     Indication: Constipation
     Dosage: 1-2 TABLETS, AS NEEDED
     Route: 048
     Dates: start: 20220502
  54. SODIUM BICARBONATE [Concomitant]
     Active Substance: SODIUM BICARBONATE
     Dosage: 5-100MEQ, CONTINUOUS INFUSION
     Route: 042
     Dates: start: 20220410, end: 20220501
  55. VANCOMYCIN [Concomitant]
     Active Substance: VANCOMYCIN
     Dosage: 1 G, ONCE
     Route: 042
     Dates: start: 20220430, end: 20220430
  56. VASOPRESSIN [Concomitant]
     Active Substance: VASOPRESSIN
     Dosage: 20-50 UNITS, CONTINUOUS INFUSION
     Route: 042
     Dates: start: 20220430, end: 20220501
  57. VASOPRESSIN [Concomitant]
     Active Substance: VASOPRESSIN
     Dosage: 1-4 UNITS
     Route: 042
     Dates: start: 20220430, end: 20220430

REACTIONS (1)
  - Hallucination, visual [Recovered/Resolved]

NARRATIVE: CASE EVENT DATE: 20220503
